FAERS Safety Report 5869604-3 (Version None)
Quarter: 2008Q3

REPORT INFORMATION
  Report Type: 
  Country: None (occurrence: None)
  Receive Date: 20080904
  Receipt Date: 20071217
  Transmission Date: 20090109
  Serious: No
  Sender: FDA-Public Use
  Company Number: US-KINGPHARMUSA00001-K200701625

PATIENT

DRUGS (3)
  1. CYTOMEL [Suspect]
     Indication: THYROIDECTOMY
     Dosage: 5 MCG, QD
     Route: 048
     Dates: start: 20050101
  2. LEVOTHROID [Concomitant]
     Indication: THYROID DISORDER
     Dosage: 75 ^MG^, QD
     Route: 048
  3. ASPIRIN [Concomitant]
     Indication: TRANSIENT ISCHAEMIC ATTACK
     Dosage: UNK, QD

REACTIONS (2)
  - DIZZINESS [None]
  - FEELING ABNORMAL [None]
